FAERS Safety Report 23917708 (Version 3)
Quarter: 2024Q2

REPORT INFORMATION
  Report Type: Spontaneous
  Country: US (occurrence: US)
  Receive Date: 20240530
  Receipt Date: 20240626
  Transmission Date: 20240716
  Serious: No
  Sender: FDA-Public Use
  Company Number: US-APOTEX-2024AP005782

PATIENT
  Sex: Male

DRUGS (14)
  1. DESMOPRESSIN ACETATE [Suspect]
     Active Substance: DESMOPRESSIN ACETATE
     Indication: Nocturia
     Dosage: 0.1 MILLIGRAM, Q.H.S.
     Route: 065
  2. DESMOPRESSIN ACETATE [Suspect]
     Active Substance: DESMOPRESSIN ACETATE
     Dosage: TOTAL DOSE: 0.3 MILLIGRAM, Q.H.S.
     Route: 065
  3. DESMOPRESSIN ACETATE [Suspect]
     Active Substance: DESMOPRESSIN ACETATE
     Dosage: TOTAL DOSE: 0.4 MILLIGRAM, Q.H.S.
     Route: 065
  4. DESMOPRESSIN ACETATE [Suspect]
     Active Substance: DESMOPRESSIN ACETATE
     Dosage: 2 TABLET OF 0.2 MILLIGRAM AND 1 TABLET OF 0.1 MILLIGRAM (TOTAL: 0.5 MG), Q.H.S.
     Route: 065
     Dates: start: 20240412
  5. DESMOPRESSIN ACETATE [Suspect]
     Active Substance: DESMOPRESSIN ACETATE
     Dosage: TOTAL DOSE: 0.6 MILLIGRAM, Q.H.S.
     Route: 065
  6. DESMOPRESSIN ACETATE [Suspect]
     Active Substance: DESMOPRESSIN ACETATE
     Dosage: TOTAL DOSE: 0.4 MILLIGRAM, Q.H.S.
     Route: 065
  7. DESMOPRESSIN ACETATE [Suspect]
     Active Substance: DESMOPRESSIN ACETATE
     Dosage: TOTAL DOSE: 0.2 MILLIGRAM, Q.H.S.
     Route: 065
     Dates: end: 20240509
  8. DESMOPRESSIN ACETATE [Suspect]
     Active Substance: DESMOPRESSIN ACETATE
     Indication: Nocturia
     Dosage: 0.2 MILLIGRAM
     Route: 065
  9. DESMOPRESSIN ACETATE [Suspect]
     Active Substance: DESMOPRESSIN ACETATE
     Dosage: TOTAL DOSE: 0.3 MILLIGRAM, Q.H.S.
     Route: 065
  10. DESMOPRESSIN ACETATE [Suspect]
     Active Substance: DESMOPRESSIN ACETATE
     Dosage: TOTAL DOSE: 0.4 MILLIGRAM, Q.H.S.
     Route: 065
  11. DESMOPRESSIN ACETATE [Suspect]
     Active Substance: DESMOPRESSIN ACETATE
     Dosage: 2 TABLET OF 0.2 MILLIGRAM AND 1 TABLET OF 0.1 MILLIGRAM (TOTAL: 0.5 MG), Q.H.S.
     Route: 065
     Dates: start: 20240412
  12. DESMOPRESSIN ACETATE [Suspect]
     Active Substance: DESMOPRESSIN ACETATE
     Dosage: TOTAL DOSE: 0.6 MILLIGRAM, Q.H.S.
     Route: 065
  13. DESMOPRESSIN ACETATE [Suspect]
     Active Substance: DESMOPRESSIN ACETATE
     Dosage: TOTAL DOSE: 0.4 MILLIGRAM, Q.H.S.
     Route: 065
  14. DESMOPRESSIN ACETATE [Suspect]
     Active Substance: DESMOPRESSIN ACETATE
     Dosage: TOTAL DOSE: 0.2 MILLIGRAM, Q.H.S.
     Route: 065
     Dates: end: 20240509

REACTIONS (4)
  - Spinal operation [Unknown]
  - Drug intolerance [Unknown]
  - Drug resistance [Unknown]
  - Drug ineffective [Unknown]

NARRATIVE: CASE EVENT DATE: 20230701
